FAERS Safety Report 12948448 (Version 1)
Quarter: 2016Q4

REPORT INFORMATION
  Report Type: Spontaneous
  Country: GB (occurrence: GB)
  Receive Date: 20161117
  Receipt Date: 20161117
  Transmission Date: 20170207
  Serious: Yes (Other)
  Sender: FDA-Public Use
  Company Number: GB-TEVA-711314ACC

PATIENT
  Age: 58 Year
  Sex: Female
  Weight: 64.8 kg

DRUGS (6)
  1. AMLODIPINE [Suspect]
     Active Substance: AMLODIPINE BESYLATE
     Indication: ESSENTIAL HYPERTENSION
     Route: 048
     Dates: start: 20160807
  2. AMLODIPINE [Suspect]
     Active Substance: AMLODIPINE BESYLATE
     Indication: ESSENTIAL HYPERTENSION
     Route: 048
     Dates: end: 20160826
  3. ATENOLOL. [Concomitant]
     Active Substance: ATENOLOL
  4. FULTIUM-D3 [Concomitant]
  5. OMEPRAZOLE. [Concomitant]
     Active Substance: OMEPRAZOLE
  6. VITAMIN B12 [Concomitant]
     Active Substance: CYANOCOBALAMIN

REACTIONS (9)
  - Headache [Unknown]
  - Irritability [Unknown]
  - Asthenia [Not Recovered/Not Resolved]
  - Dyspepsia [Unknown]
  - Drug ineffective [Unknown]
  - Muscle spasms [Unknown]
  - Insomnia [Unknown]
  - Palpitations [Unknown]
  - Disturbance in attention [Unknown]

NARRATIVE: CASE EVENT DATE: 20160807
